FAERS Safety Report 4618775-5 (Version None)
Quarter: 2005Q1

REPORT INFORMATION
  Report Type: 
  Country: None (occurrence: None)
  Receive Date: 20050323
  Receipt Date: 20050311
  Transmission Date: 20050727
  Serious: Yes (Hospitalization)
  Sender: FDA-Public Use
  Company Number: 2005044135

PATIENT
  Sex: Female

DRUGS (1)
  1. GEODON [Suspect]
     Indication: ILL-DEFINED DISORDER
     Dosage: 160 MG (80 MG, 2 IN 1 D), ORAL
     Route: 048

REACTIONS (1)
  - HALLUCINATION, AUDITORY [None]
